FAERS Safety Report 16169733 (Version 2)
Quarter: 2019Q4

REPORT INFORMATION
  Report Type: Spontaneous
  Country: PT (occurrence: PT)
  Receive Date: 20190408
  Receipt Date: 20191004
  Transmission Date: 20200122
  Serious: Yes (Other)
  Sender: FDA-Public Use
  Company Number: PT-MYLANLABS-2019M1031319

PATIENT
  Age: 78 Year
  Sex: Male
  Weight: 65 kg

DRUGS (4)
  1. ZALDIAR [Concomitant]
     Active Substance: ACETAMINOPHEN\TRAMADOL HYDROCHLORIDE
  2. IMATINIB. [Suspect]
     Active Substance: IMATINIB MESYLATE
     Indication: CHRONIC MYELOID LEUKAEMIA
     Dosage: 400MG/DIA
     Route: 048
     Dates: start: 20180626
  3. ALLOPURINOL. [Concomitant]
     Active Substance: ALLOPURINOL
  4. BECOZYME                           /00314701/ [Concomitant]

REACTIONS (1)
  - Breast oedema [Recovered/Resolved]

NARRATIVE: CASE EVENT DATE: 20180713
